FAERS Safety Report 6138486-7 (Version None)
Quarter: 2009Q1

REPORT INFORMATION
  Report Type: 
  Country: None (occurrence: None)
  Receive Date: 20090331
  Receipt Date: 20090324
  Transmission Date: 20090719
  Serious: Yes (Hospitalization)
  Sender: FDA-Public Use
  Company Number: US-PFIZER INC-2009179591

PATIENT
  Sex: Female
  Weight: 106.58 kg

DRUGS (21)
  1. NAPROXEN [Suspect]
     Indication: OSTEOARTHRITIS
     Dosage: UNK
     Route: 048
     Dates: start: 20070503
  2. BLINDED *PLACEBO [Suspect]
     Indication: OSTEOARTHRITIS
     Dosage: UNK
     Route: 048
     Dates: start: 20070503
  3. BLINDED CELECOXIB [Suspect]
     Indication: OSTEOARTHRITIS
     Dosage: UNK
     Route: 048
     Dates: start: 20070503
  4. IBUPROFEN TABLETS [Suspect]
     Indication: OSTEOARTHRITIS
     Dosage: UNK
     Route: 048
     Dates: start: 20070503
  5. NAPROXEN [Suspect]
     Dosage: UNK
     Route: 048
     Dates: start: 20070503
  6. NAPROXEN [Suspect]
     Indication: RHEUMATOID ARTHRITIS
  7. BLINDED *PLACEBO [Suspect]
     Indication: RHEUMATOID ARTHRITIS
  8. BLINDED CELECOXIB [Suspect]
     Indication: RHEUMATOID ARTHRITIS
  9. IBUPROFEN TABLETS [Suspect]
     Indication: RHEUMATOID ARTHRITIS
  10. NAPROXEN [Suspect]
  11. NEXIUM [Concomitant]
     Dosage: 40 MG, 1X/DAY
     Route: 048
     Dates: start: 20070503
  12. NEXIUM [Concomitant]
     Dosage: 20 MG, 1X/DAY
     Route: 048
     Dates: start: 20070503, end: 20080110
  13. LISINOPRIL [Concomitant]
     Dosage: UNK
     Route: 048
     Dates: start: 20060405
  14. HYDROCHLOROTHIAZIDE [Concomitant]
     Dosage: UNK
     Route: 048
     Dates: start: 20060405
  15. LYRICA [Concomitant]
     Dosage: UNK
     Route: 048
     Dates: start: 20080930
  16. VENTOLIN [Concomitant]
     Dosage: UNK
     Route: 055
     Dates: start: 20071206
  17. K-DUR [Concomitant]
     Dosage: UNK
     Route: 048
     Dates: start: 20080930
  18. FUROSEMIDE [Concomitant]
     Dosage: UNK
     Route: 048
     Dates: start: 20080930
  19. ATENOLOL [Concomitant]
     Dosage: UNK
     Route: 048
     Dates: start: 20081105
  20. PRED MILD [Concomitant]
     Dosage: UNK
     Route: 047
     Dates: start: 20071206
  21. VALIUM [Concomitant]
     Dosage: UNK
     Route: 048
     Dates: start: 20071206

REACTIONS (1)
  - ULCER [None]
